FAERS Safety Report 6277745-4 (Version None)
Quarter: 2009Q3

REPORT INFORMATION
  Report Type: 
  Country: None (occurrence: None)
  Receive Date: 20090722
  Receipt Date: 20090714
  Transmission Date: 20100115
  Serious: Yes (Hospitalization)
  Sender: FDA-Public Use
  Company Number: B0581972A

PATIENT
  Sex: Female

DRUGS (4)
  1. SERETIDE [Suspect]
     Indication: ASTHMA
     Dosage: 250MCG TWICE PER DAY
     Route: 055
     Dates: start: 20080209, end: 20080213
  2. BRUFEN [Concomitant]
     Route: 048
     Dates: start: 20080205
  3. HUSCODE [Concomitant]
     Route: 048
     Dates: start: 20080207
  4. CIPROXAN [Concomitant]
     Route: 048
     Dates: start: 20080209

REACTIONS (3)
  - DYSPNOEA [None]
  - STATUS ASTHMATICUS [None]
  - WHEEZING [None]
